FAERS Safety Report 6647241-0 (Version None)
Quarter: 2010Q1

REPORT INFORMATION
  Report Type: 
  Country: None (occurrence: None)
  Receive Date: 20100323
  Receipt Date: 20100315
  Transmission Date: 20100710
  Serious: Yes (Hospitalization)
  Sender: FDA-Public Use
  Company Number: A0850226A

PATIENT
  Age: 72 Year
  Sex: Male

DRUGS (5)
  1. LAMICTAL CD [Suspect]
     Dosage: 150MG TWICE PER DAY
     Route: 048
     Dates: start: 20040101
  2. PHENOBARBITAL TAB [Concomitant]
  3. ENALAPRIL MALEATE [Concomitant]
  4. ASPIRIN [Concomitant]
  5. OMEPRAZOLE [Concomitant]

REACTIONS (4)
  - BLINDNESS [None]
  - CATARACT [None]
  - EYE PAIN [None]
  - VISION BLURRED [None]
